FAERS Safety Report 14917636 (Version 3)
Quarter: 2018Q3

REPORT INFORMATION
  Report Type: Spontaneous
  Country: AU (occurrence: AU)
  Receive Date: 20180521
  Receipt Date: 20180702
  Transmission Date: 20181010
  Serious: Yes (Death, Life-Threatening, Hospitalization, Other)
  Sender: FDA-Public Use
  Company Number: AU-AMGEN-AUSSP2018066928

PATIENT
  Age: 79 Year
  Sex: Female
  Weight: 47 kg

DRUGS (1)
  1. PROLIA [Suspect]
     Active Substance: DENOSUMAB
     Indication: OSTEOPOROSIS POSTMENOPAUSAL
     Dosage: 60 MG, UNK
     Route: 058
     Dates: start: 20180131

REACTIONS (3)
  - Pancreatitis [Fatal]
  - Hypocalcaemia [Fatal]
  - Pseudocyst [Fatal]

NARRATIVE: CASE EVENT DATE: 201803
